FAERS Safety Report 19092779 (Version 1)
Quarter: 2021Q2

REPORT INFORMATION
  Report Type: Spontaneous
  Country: US (occurrence: US)
  Receive Date: 20210405
  Receipt Date: 20210405
  Transmission Date: 20210717
  Serious: No
  Sender: FDA-Public Use
  Company Number: US-AUROBINDO-AUR-APL-2021-006399

PATIENT
  Age: 65 Year
  Sex: Female
  Weight: 83.9 kg

DRUGS (1)
  1. SULFAMETHOXAZOLE AND TRIMETHOPRIM TABLETS USP 800/160 MG [Suspect]
     Active Substance: SULFAMETHOXAZOLE\TRIMETHOPRIM
     Indication: URINARY TRACT INFECTION
     Dosage: 1 DOSAGE FORM, TWO TIMES A DAY (1 TABLET, TWICE A DAY)
     Route: 065
     Dates: start: 20210130, end: 20210201

REACTIONS (2)
  - Blister [Not Recovered/Not Resolved]
  - Oral mucosal blistering [Not Recovered/Not Resolved]

NARRATIVE: CASE EVENT DATE: 20210201
